FAERS Safety Report 5040873-5 (Version None)
Quarter: 2006Q2

REPORT INFORMATION
  Report Type: 
  Country: None (occurrence: None)
  Receive Date: 20060629
  Receipt Date: 20060629
  Transmission Date: 20061013
  Serious: Yes (Hospitalization, Disabling)
  Sender: FDA-Public Use
  Company Number: None

PATIENT
  Age: 69 Year
  Sex: Male
  Weight: 78 kg

DRUGS (2)
  1. LENALIDOMIDE 10 MG CELGENE [Suspect]
     Indication: ACUTE MYELOID LEUKAEMIA
     Dosage: 10 MG ONCE DAILY PO
     Route: 048
     Dates: start: 20060601, end: 20060622
  2. LENALIDOMIDE 10 MG CELGENE [Suspect]
     Indication: CHROMOSOME ABNORMALITY
     Dosage: 10 MG ONCE DAILY PO
     Route: 048
     Dates: start: 20060601, end: 20060622

REACTIONS (3)
  - CELLULITIS [None]
  - NEUTROPHIL COUNT DECREASED [None]
  - PLATELET COUNT DECREASED [None]
